FAERS Safety Report 5022349-4 (Version None)
Quarter: 2006Q2

REPORT INFORMATION
  Report Type: 
  Country: None (occurrence: None)
  Receive Date: 20060609
  Receipt Date: 20060529
  Transmission Date: 20061013
  Serious: Yes (Other)
  Sender: FDA-Public Use
  Company Number: PHBS2006NZ07900

PATIENT
  Age: 47 Year
  Sex: Male

DRUGS (1)
  1. ZOLEDRONATE [Suspect]
     Route: 042

REACTIONS (4)
  - ANGIOGRAM RETINA ABNORMAL [None]
  - METAMORPHOPSIA [None]
  - RETINAL PIGMENT EPITHELIOPATHY [None]
  - VISION BLURRED [None]
